FAERS Safety Report 4679894-0 (Version None)
Quarter: 2005Q2

REPORT INFORMATION
  Report Type: 
  Country: None (occurrence: None)
  Receive Date: 20050602
  Receipt Date: 20050308
  Transmission Date: 20051028
  Serious: No
  Sender: FDA-Public Use
  Company Number: US-GLAXOSMITHKLINE-A0549111A

PATIENT
  Age: 65 Year
  Sex: Male

DRUGS (1)
  1. AUGMENTIN XR [Suspect]
     Indication: ILL-DEFINED DISORDER
     Route: 048
     Dates: start: 20050106, end: 20050110

REACTIONS (1)
  - BLOOD URINE PRESENT [None]
